FAERS Safety Report 16239810 (Version 2)
Quarter: 2020Q4

REPORT INFORMATION
  Report Type: Spontaneous
  Country: RO (occurrence: RO)
  Receive Date: 20190425
  Receipt Date: 20201020
  Transmission Date: 20210113
  Serious: Yes (Death, Other)
  Sender: FDA-Public Use
  Company Number: RO-PFIZER INC-2018186265

PATIENT
  Age: 47 Year
  Sex: Female

DRUGS (1)
  1. INLYTA [Suspect]
     Active Substance: AXITINIB
     Indication: METASTATIC RENAL CELL CARCINOMA
     Dosage: 5 MG, TWICE A DAY
     Dates: start: 201712, end: 201902

REACTIONS (12)
  - Back pain [Unknown]
  - Thrombosis [Unknown]
  - Dysgeusia [Unknown]
  - Essential hypertension [Unknown]
  - Sepsis [Unknown]
  - Death [Fatal]
  - Vomiting [Unknown]
  - Haemorrhage [Unknown]
  - Dysphonia [Unknown]
  - Proteinuria [Unknown]
  - Constipation [Unknown]
  - Nausea [Unknown]

NARRATIVE: CASE EVENT DATE: 201902
